FAERS Safety Report 24411730 (Version 1)
Quarter: 2024Q4

REPORT INFORMATION
  Report Type: Spontaneous
  Country: TR (occurrence: TR)
  Receive Date: 20241008
  Receipt Date: 20241008
  Transmission Date: 20250114
  Serious: Yes (Death, Hospitalization, Other)
  Sender: AMNEAL
  Company Number: TR-AMNEAL PHARMACEUTICALS-2024-AMRX-03616

PATIENT
  Age: 57 Year
  Sex: Female

DRUGS (1)
  1. WARFARIN SODIUM [Suspect]
     Active Substance: WARFARIN SODIUM
     Indication: Product used for unknown indication
     Dosage: UNK, REGULARLY FOR 16 YEARS
     Route: 065

REACTIONS (4)
  - Tumour rupture [Fatal]
  - Hypovolaemic shock [Fatal]
  - Toxicity to various agents [Fatal]
  - Haemorrhage [Fatal]
